FAERS Safety Report 7815261 (Version 3)
Quarter: 2014Q4

REPORT INFORMATION
  Report Type: Spontaneous
  Country: US (occurrence: US)
  Receive Date: 20110216
  Receipt Date: 20141010
  Transmission Date: 20150529
  Serious: Yes (Hospitalization, Other)
  Sender: FDA-Public Use
  Company Number: US-TEVA-267069USA

PATIENT
  Age: 53 Year
  Sex: Female

DRUGS (1)
  1. COPAXONE [Suspect]
     Active Substance: GLATIRAMER ACETATE
     Indication: MULTIPLE SCLEROSIS
     Route: 058
     Dates: start: 20010404

REACTIONS (5)
  - Neoplasm malignant [Unknown]
  - Spleen disorder [Unknown]
  - Multiple sclerosis relapse [Unknown]
  - Pancreatic carcinoma [Unknown]
  - Hernia [Unknown]

NARRATIVE: CASE EVENT DATE: 20110121
